FAERS Safety Report 4661234-4 (Version None)
Quarter: 2005Q2

REPORT INFORMATION
  Report Type: 
  Country: None (occurrence: None)
  Receive Date: 20050511
  Receipt Date: 20050505
  Transmission Date: 20051028
  Serious: Yes (Hospitalization, Other)
  Sender: FDA-Public Use
  Company Number: 213667

PATIENT
  Sex: Male

DRUGS (2)
  1. MABTHERA  (RITUXIMAB) CONC FOR SOLUTION FOR INFUSION [Suspect]
     Indication: WALDENSTROM'S MACROGLOBULINAEMIA
     Dosage: INTRAVENOUS
     Route: 042
     Dates: start: 20050301
  2. ANTIBIOTICS (ANTIBIOTICS NOS) [Concomitant]

REACTIONS (9)
  - BLOOD IMMUNOGLOBULIN M INCREASED [None]
  - CONDITION AGGRAVATED [None]
  - CONFUSIONAL STATE [None]
  - INCONTINENCE [None]
  - INFECTION [None]
  - LOBAR PNEUMONIA [None]
  - MOBILITY DECREASED [None]
  - MONOCLONAL IMMUNOGLOBULIN PRESENT [None]
  - PROGRESSIVE SUPRANUCLEAR PALSY [None]
